FAERS Safety Report 24528160 (Version 2)
Quarter: 2024Q4

REPORT INFORMATION
  Report Type: Spontaneous
  Country: US (occurrence: US)
  Receive Date: 20241021
  Receipt Date: 20241115
  Transmission Date: 20250114
  Serious: No
  Sender: MYLAN
  Company Number: US-MYLANLABS-2024M1093817

PATIENT
  Age: 59 Year
  Sex: Female
  Weight: 85.73 kg

DRUGS (4)
  1. XANAX [Suspect]
     Active Substance: ALPRAZOLAM
     Indication: Anxiety
     Dosage: 0.25 MILLIGRAM (2 TO 3 AS NEEDED)
     Route: 048
     Dates: start: 20241003
  2. XANAX [Suspect]
     Active Substance: ALPRAZOLAM
     Dosage: 0.25 MILLIGRAM (2 TO 3 AS NEEDED)
     Route: 048
     Dates: start: 20241005
  3. XANAX [Suspect]
     Active Substance: ALPRAZOLAM
     Dosage: 0.25 MILLIGRAM, TID (1 TABLET, THREE TIMES A DAY)
     Route: 048
     Dates: start: 20241009
  4. XANAX [Suspect]
     Active Substance: ALPRAZOLAM
     Dosage: 0.25 MILLIGRAM (2 TO 3 AS NEEDED)
     Route: 048
     Dates: start: 20241011

REACTIONS (2)
  - Pruritus [Unknown]
  - Rash [Unknown]

NARRATIVE: CASE EVENT DATE: 20241003
